FAERS Safety Report 15398413 (Version 1)
Quarter: 2018Q3

REPORT INFORMATION
  Report Type: Spontaneous
  Country: FR (occurrence: FR)
  Receive Date: 20180918
  Receipt Date: 20180918
  Transmission Date: 20181010
  Serious: Yes (Other)
  Sender: FDA-Public Use
  Company Number: FR-MYLANLABS-2018M1068210

PATIENT
  Age: 4 Year
  Sex: Male
  Weight: 18 kg

DRUGS (2)
  1. PARACETAMOL [Concomitant]
     Active Substance: ACETAMINOPHEN
     Indication: PRODUCT USED FOR UNKNOWN INDICATION
     Dosage: UNK
  2. ACICLOVIR [Suspect]
     Active Substance: ACYCLOVIR
     Indication: VARICELLA
     Dosage: 500 MG, QID
     Route: 042
     Dates: start: 20160918, end: 20160922

REACTIONS (7)
  - Blister [Recovered/Resolved with Sequelae]
  - Pain [Recovered/Resolved with Sequelae]
  - Skin necrosis [Recovered/Resolved with Sequelae]
  - Extravasation [Unknown]
  - Drug administration error [Unknown]
  - Erythema [Recovered/Resolved with Sequelae]
  - Administration site oedema [Recovered/Resolved with Sequelae]

NARRATIVE: CASE EVENT DATE: 201609
